FAERS Safety Report 7078699-3 (Version None)
Quarter: 2010Q4

REPORT INFORMATION
  Report Type: 
  Country: None (occurrence: None)
  Receive Date: 20101102
  Receipt Date: 20101026
  Transmission Date: 20110411
  Serious: Yes (Hospitalization)
  Sender: FDA-Public Use
  Company Number: JP-B.I. PHARMACEUTICALS,INC./RIDGEFIELD-2010-DE-05802GD

PATIENT
  Age: 15 Year
  Sex: Male

DRUGS (3)
  1. PERSANTIN [Suspect]
     Indication: ANTICOAGULANT THERAPY
  2. WARFARIN [Suspect]
     Indication: ANTICOAGULANT THERAPY
  3. BYASPIRIN [Suspect]
     Indication: ANTICOAGULANT THERAPY

REACTIONS (5)
  - ABSCESS LIMB [None]
  - MUSCLE HAEMORRHAGE [None]
  - MUSCLE STRAIN [None]
  - PYREXIA [None]
  - SALMONELLOSIS [None]
